FAERS Safety Report 19384840 (Version 2)
Quarter: 2021Q3

REPORT INFORMATION
  Report Type: Report from Study
  Country: JP (occurrence: JP)
  Receive Date: 20210608
  Receipt Date: 20210729
  Transmission Date: 20211014
  Serious: Yes (Hospitalization, Other)
  Sender: FDA-Public Use
  Company Number: JP-JNJFOC-20150310709

PATIENT
  Age: 38 Year
  Sex: Male

DRUGS (29)
  1. EPZICOM [Concomitant]
     Active Substance: ABACAVIR SULFATE\LAMIVUDINE
     Indication: HIV INFECTION
     Route: 048
     Dates: start: 20121113, end: 20130116
  2. ZITHROMAC:600MG [Concomitant]
     Indication: DISSEMINATED MYCOBACTERIUM AVIUM COMPLEX INFECTION
     Route: 048
     Dates: start: 20130212, end: 20170712
  3. EPZICOM [Concomitant]
     Active Substance: ABACAVIR SULFATE\LAMIVUDINE
     Indication: HIV INFECTION
     Route: 048
     Dates: start: 20140529, end: 20140625
  4. PREDNISOLONE. [Suspect]
     Active Substance: PREDNISOLONE
     Indication: IMMUNE RECONSTITUTION INFLAMMATORY SYNDROME
     Route: 065
     Dates: start: 20130626
  5. CELSENTRI [Concomitant]
     Active Substance: MARAVIROC
     Indication: HIV INFECTION
     Route: 048
     Dates: start: 20130130, end: 20140528
  6. ACICLOVIR [Concomitant]
     Active Substance: ACYCLOVIR
     Indication: VARICELLA
     Route: 065
     Dates: start: 20151003, end: 20151006
  7. ATORVASTATIN [Concomitant]
     Active Substance: ATORVASTATIN
     Indication: DYSLIPIDAEMIA
     Dosage: DOSE UNKNOWN
     Route: 048
     Dates: start: 20210120
  8. SIVEXTRO [Concomitant]
     Active Substance: TEDIZOLID PHOSPHATE
     Indication: CELLULITIS
     Dosage: DOSE UNKNOWN
     Route: 065
     Dates: start: 20210326
  9. VALACICLOVIR [Concomitant]
     Active Substance: VALACYCLOVIR HYDROCHLORIDE
     Indication: VARICELLA
     Route: 048
     Dates: start: 20151007, end: 20151012
  10. CRAVIT [Concomitant]
     Active Substance: LEVOFLOXACIN
     Indication: DISSEMINATED MYCOBACTERIUM AVIUM COMPLEX INFECTION
     Dosage: UNKNOWN
     Route: 065
     Dates: start: 20191106
  11. NORVIR [Concomitant]
     Active Substance: RITONAVIR
     Indication: HIV INFECTION
     Route: 048
     Dates: start: 20130117, end: 20170308
  12. DESCOVY [Concomitant]
     Active Substance: EMTRICITABINE\TENOFOVIR ALAFENAMIDE FUMARATE
     Indication: HIV INFECTION
     Route: 048
     Dates: start: 20170309
  13. BAKTAR [Concomitant]
     Active Substance: SULFAMETHOXAZOLE\TRIMETHOPRIM
     Indication: ANTIFUNGAL PROPHYLAXIS
     Route: 048
     Dates: start: 20130401, end: 20160914
  14. BAKTAR [Concomitant]
     Active Substance: SULFAMETHOXAZOLE\TRIMETHOPRIM
     Indication: PROPHYLAXIS
     Dosage: UNKNOWN
     Route: 048
     Dates: start: 20170614, end: 20171206
  15. CLARITHROMYCIN. [Concomitant]
     Active Substance: CLARITHROMYCIN
     Indication: DISSEMINATED MYCOBACTERIUM AVIUM COMPLEX INFECTION
     Dosage: UNKNOWN
     Route: 048
     Dates: start: 20170713
  16. CRAVIT [Concomitant]
     Active Substance: LEVOFLOXACIN
     Indication: DISSEMINATED MYCOBACTERIUM AVIUM COMPLEX INFECTION
     Dosage: UNKNOWN
     Route: 065
     Dates: start: 20170401, end: 20181128
  17. PREDNISOLONE. [Suspect]
     Active Substance: PREDNISOLONE
     Indication: IMMUNE RECONSTITUTION INFLAMMATORY SYNDROME
     Route: 065
     Dates: start: 20130415, end: 20130523
  18. EPIVIR [Concomitant]
     Active Substance: LAMIVUDINE
     Indication: HIV INFECTION
     Route: 048
     Dates: start: 20130130, end: 20130626
  19. LANSOPRAZOLE. [Concomitant]
     Active Substance: LANSOPRAZOLE
     Indication: CYTOMEGALOVIRUS OESOPHAGITIS
     Route: 065
     Dates: start: 20130401
  20. LEVOFLOXACIN HEMIHYDRATE [Concomitant]
     Active Substance: LEVOFLOXACIN
     Indication: DISSEMINATED MYCOBACTERIUM AVIUM COMPLEX INFECTION
     Route: 065
     Dates: start: 20130401, end: 20160622
  21. INTELENCE [Suspect]
     Active Substance: ETRAVIRINE
     Indication: HIV INFECTION
     Route: 048
     Dates: start: 20130117, end: 20170308
  22. PREZISTA [Suspect]
     Active Substance: DARUNAVIR ETHANOLATE
     Indication: HIV INFECTION
     Route: 048
     Dates: start: 20130117, end: 20170308
  23. PREDNISOLONE. [Suspect]
     Active Substance: PREDNISOLONE
     Indication: IMMUNE RECONSTITUTION INFLAMMATORY SYNDROME
     Route: 065
     Dates: start: 20130524, end: 20130625
  24. EPZICOM [Concomitant]
     Active Substance: ABACAVIR SULFATE\LAMIVUDINE
     Indication: HIV INFECTION
     Route: 048
     Dates: start: 20121023, end: 20121024
  25. PREDNISOLONE. [Suspect]
     Active Substance: PREDNISOLONE
     Indication: IMMUNE RECONSTITUTION INFLAMMATORY SYNDROME
     Dosage: 13?20 MG/DAY
     Route: 065
     Dates: start: 20140401, end: 20160914
  26. PREDNISOLONE. [Suspect]
     Active Substance: PREDNISOLONE
     Indication: IMMUNE RECONSTITUTION INFLAMMATORY SYNDROME
     Route: 065
     Dates: start: 20160915
  27. TIVICAY [Concomitant]
     Active Substance: DOLUTEGRAVIR SODIUM
     Indication: HIV INFECTION
     Route: 048
     Dates: start: 20140626
  28. EBUTOL [Concomitant]
     Active Substance: ETHAMBUTOL HYDROCHLORIDE
     Indication: DISSEMINATED MYCOBACTERIUM AVIUM COMPLEX INFECTION
     Route: 048
     Dates: start: 20130401, end: 20190320
  29. TAKEPRON [Concomitant]
     Active Substance: LANSOPRAZOLE
     Indication: PROPHYLAXIS
     Dosage: UNKNOWN
     Route: 065
     Dates: start: 20170401

REACTIONS (5)
  - Protein-losing gastroenteropathy [Not Recovered/Not Resolved]
  - White blood cell count increased [Recovered/Resolved]
  - Immune reconstitution inflammatory syndrome [Not Recovered/Not Resolved]
  - Hypoalbuminaemia [Not Recovered/Not Resolved]
  - Varicella [Recovered/Resolved]

NARRATIVE: CASE EVENT DATE: 20130130
